FAERS Safety Report 6578202-8 (Version None)
Quarter: 2010Q1

REPORT INFORMATION
  Report Type: 
  Country: None (occurrence: None)
  Receive Date: 20100211
  Receipt Date: 20100204
  Transmission Date: 20100710
  Serious: Yes (Life-Threatening, Hospitalization)
  Sender: FDA-Public Use
  Company Number: FR-SANOFI-AVENTIS-2010SA007106

PATIENT
  Age: 60 Year
  Sex: Male

DRUGS (7)
  1. FLUDEX [Suspect]
     Indication: HYPERTENSION
     Route: 048
     Dates: end: 20080826
  2. VITAMINE B [Concomitant]
  3. ESOMEPRAZOLE [Concomitant]
  4. BISOPROLOL [Concomitant]
  5. NOROXIN [Concomitant]
  6. PLAVIX [Concomitant]
  7. NEURONTIN [Concomitant]

REACTIONS (4)
  - CONVULSION [None]
  - HYPOMAGNESAEMIA [None]
  - URINE ELECTROLYTES INCREASED [None]
  - VENTRICULAR EXTRASYSTOLES [None]
